FAERS Safety Report 15665142 (Version 1)
Quarter: 2018Q4

REPORT INFORMATION
  Report Type: Spontaneous
  Country: FR (occurrence: FR)
  Receive Date: 20181128
  Receipt Date: 20181128
  Transmission Date: 20190205
  Serious: Yes (Other)
  Sender: FDA-Public Use
  Company Number: FR-SA-2018SA168462

PATIENT

DRUGS (6)
  1. ALEMTUZUMAB [Suspect]
     Active Substance: ALEMTUZUMAB
     Indication: BONE MARROW CONDITIONING REGIMEN
     Route: 041
  2. FLUDARABINE PHOSPHATE. [Suspect]
     Active Substance: FLUDARABINE PHOSPHATE
     Indication: BONE MARROW CONDITIONING REGIMEN
     Route: 041
  3. CYCLOPHOSPHAMIDE. [Concomitant]
     Active Substance: CYCLOPHOSPHAMIDE
     Indication: GRAFT VERSUS HOST DISEASE
     Route: 065
  4. CYCLOSPORIN [Concomitant]
     Active Substance: CYCLOSPORINE
     Indication: GRAFT VERSUS HOST DISEASE
     Route: 065
  5. BUSULFAN. [Suspect]
     Active Substance: BUSULFAN
     Indication: BONE MARROW CONDITIONING REGIMEN
     Route: 065
  6. MYCOPHENOLATE MOFETIL. [Concomitant]
     Active Substance: MYCOPHENOLATE MOFETIL
     Indication: GRAFT VERSUS HOST DISEASE
     Route: 065

REACTIONS (2)
  - Off label use [Unknown]
  - Cytomegalovirus infection [Unknown]
